FAERS Safety Report 9436982 (Version 2)
Quarter: 2014Q2

REPORT INFORMATION
  Report Type: Spontaneous
  Country: GB (occurrence: GB)
  Receive Date: 20130802
  Receipt Date: 20140403
  Transmission Date: 20141212
  Serious: Yes (Other)
  Sender: FDA-Public Use
  Company Number: GB-RANBAXY-2013R1-71632

PATIENT
  Age: 18 Year
  Sex: Female
  Weight: 57 kg

DRUGS (2)
  1. SERTRALINE [Suspect]
     Indication: ANXIETY
     Dosage: UNK
     Route: 048
     Dates: start: 20130313, end: 20130417
  2. SERTRALINE [Suspect]
     Indication: DEPRESSION

REACTIONS (9)
  - Decreased appetite [Recovered/Resolved]
  - Syncope [Recovered/Resolved]
  - Flatulence [Recovered/Resolved]
  - Malaise [Recovered/Resolved]
  - Headache [Recovered/Resolved]
  - Dizziness [Recovered/Resolved]
  - Muscle spasms [Recovered/Resolved]
  - Nausea [Recovered/Resolved]
  - Visual impairment [Recovered/Resolved]
